FAERS Safety Report 9825518 (Version 3)
Quarter: 2014Q1

REPORT INFORMATION
  Report Type: Spontaneous
  Country: US (occurrence: US)
  Receive Date: 20140117
  Receipt Date: 20140227
  Transmission Date: 20141002
  Serious: No
  Sender: FDA-Public Use
  Company Number: US-PFIZER INC-2014011347

PATIENT
  Age: 70 Year
  Sex: Female

DRUGS (2)
  1. LIPITOR [Suspect]
     Dosage: UNK
  2. PRINIVIL [Concomitant]
     Dosage: 10 MG, DAILY

REACTIONS (2)
  - Nightmare [Unknown]
  - Tooth fracture [Unknown]
